FAERS Safety Report 17026330 (Version 1)
Quarter: 2019Q4

REPORT INFORMATION
  Report Type: Spontaneous
  Country: US (occurrence: US)
  Receive Date: 20191112
  Receipt Date: 20191112
  Transmission Date: 20200122
  Serious: Yes (Other)
  Sender: FDA-Public Use
  Company Number: None

PATIENT
  Age: 53 Year
  Sex: Female
  Weight: 65.25 kg

DRUGS (1)
  1. ESTRADIOL. [Suspect]
     Active Substance: ESTRADIOL

REACTIONS (5)
  - Mood swings [None]
  - Weight increased [None]
  - Anxiety [None]
  - Treatment failure [None]
  - Hot flush [None]

NARRATIVE: CASE EVENT DATE: 20190718
